FAERS Safety Report 12473302 (Version 4)
Quarter: 2016Q3

REPORT INFORMATION
  Report Type: Spontaneous
  Country: FR (occurrence: FR)
  Receive Date: 20160616
  Receipt Date: 20160713
  Transmission Date: 20161109
  Serious: Yes (Death, Life-Threatening, Hospitalization)
  Sender: FDA-Public Use
  Company Number: FR-ASTRAZENECA-2016SE64231

PATIENT
  Age: 29976 Day
  Sex: Female

DRUGS (10)
  1. IKOREL [Concomitant]
     Active Substance: NICORANDIL
     Route: 048
  2. FUMAFER [Concomitant]
     Active Substance: FERROUS FUMARATE
     Dosage: 66.0MG UNKNOWN
     Route: 048
  3. INEXIUM [Suspect]
     Active Substance: ESOMEPRAZOLE
     Route: 048
  4. PLAVIX [Interacting]
     Active Substance: CLOPIDOGREL BISULFATE
     Indication: MYOCARDIAL ISCHAEMIA
     Route: 048
  5. ZAMUDOL [Concomitant]
     Active Substance: TRAMADOL HYDROCHLORIDE
     Dosage: 50 MG SR 1 DF BIDAILY
     Route: 048
  6. DIAMOX SEQUELS [Suspect]
     Active Substance: ACETAZOLAMIDE
     Indication: CARDIAC FAILURE
     Route: 048
     Dates: start: 201506
  7. METFORMINE [Suspect]
     Active Substance: METFORMIN HYDROCHLORIDE
     Indication: TYPE 2 DIABETES MELLITUS
     Dosage: NON AZ DRUG
     Route: 048
  8. LOVENOX [Concomitant]
     Active Substance: ENOXAPARIN SODIUM
     Route: 058
  9. ALDACTONE [Interacting]
     Active Substance: SPIRONOLACTONE
     Indication: CARDIAC FAILURE
     Route: 048
     Dates: start: 201506
  10. ZOLPIDEM [Concomitant]
     Active Substance: ZOLPIDEM\ZOLPIDEM TARTRATE
     Route: 048

REACTIONS (6)
  - Drug interaction [Fatal]
  - Metabolic acidosis [Fatal]
  - Rhabdomyolysis [Unknown]
  - Coma scale abnormal [Unknown]
  - Multiple organ dysfunction syndrome [Unknown]
  - Shock [Unknown]

NARRATIVE: CASE EVENT DATE: 20150625
